FAERS Safety Report 5537722-5 (Version None)
Quarter: 2007Q4

REPORT INFORMATION
  Report Type: 
  Country: None (occurrence: None)
  Receive Date: 20071207
  Receipt Date: 20071129
  Transmission Date: 20080405
  Serious: Yes (Hospitalization)
  Sender: FDA-Public Use
  Company Number: US-JNJFOC-20060803319

PATIENT
  Sex: Female
  Weight: 81.65 kg

DRUGS (1)
  1. ORTHO EVRA [Suspect]
     Indication: CONTRACEPTION
     Dosage: DOSAGE UNKNOWN
     Route: 062

REACTIONS (4)
  - DEEP VEIN THROMBOSIS [None]
  - DEHYDRATION [None]
  - GENITAL HERPES [None]
  - SINUSITIS [None]
